FAERS Safety Report 11345720 (Version 2)
Quarter: 2015Q3

REPORT INFORMATION
  Report Type: Spontaneous
  Country: IT (occurrence: IT)
  Receive Date: 20150806
  Receipt Date: 20150812
  Transmission Date: 20151125
  Serious: Yes (Hospitalization)
  Sender: FDA-Public Use
  Company Number: IT-ASTRAZENECA-2015SE75156

PATIENT
  Age: 13423 Day
  Sex: Female

DRUGS (4)
  1. METFORMIN [Concomitant]
     Active Substance: METFORMIN HYDROCHLORIDE
  2. FORXIGA [Suspect]
     Active Substance: DAPAGLIFLOZIN
     Indication: TYPE 1 DIABETES MELLITUS
     Route: 048
  3. INSULIN LISPRO [Concomitant]
     Active Substance: INSULIN LISPRO
     Dosage: INSULIN PUMP (MICROPUMP), 17 IU/24HOURS
     Route: 058
  4. PHYSIOLOGICAL SOLUTION [Concomitant]
     Dosage: 500 ML 1 VIAL INTRAVENOUS AT 17.30 100 ML BICARBONATE 8.4% BOLUS 500 ML PHYSIOLOGICAL SOLUTION
     Route: 042

REACTIONS (3)
  - Diabetic ketoacidosis [Recovered/Resolved]
  - Renal failure [Recovered/Resolved]
  - Product use issue [Unknown]

NARRATIVE: CASE EVENT DATE: 20150725
